FAERS Safety Report 9131663 (Version 1)
Quarter: 2013Q1

REPORT INFORMATION
  Report Type: Report from Study
  Country: US (occurrence: US)
  Receive Date: 20130301
  Receipt Date: 20130301
  Transmission Date: 20140127
  Serious: No
  Sender: FDA-Public Use
  Company Number: US-MYLANLABS-2012S1010637

PATIENT
  Sex: Male
  Weight: 64 kg

DRUGS (4)
  1. AMNESTEEM CAPSULES [Suspect]
     Indication: ACNE
     Dates: start: 201202
  2. AMNESTEEM CAPSULES [Suspect]
     Indication: ACNE
  3. AMNESTEEM CAPSULES [Suspect]
     Indication: ACNE
  4. AMNESTEEM CAPSULES [Suspect]
     Indication: ACNE
     Dates: end: 201204

REACTIONS (2)
  - Abdominal pain [Recovered/Resolved]
  - Abdominal discomfort [Recovered/Resolved]
